FAERS Safety Report 4903033-1 (Version None)
Quarter: 2006Q1

REPORT INFORMATION
  Report Type: 
  Country: None (occurrence: None)
  Receive Date: 20060207
  Receipt Date: 20050113
  Transmission Date: 20060701
  Serious: Yes (Hospitalization)
  Sender: FDA-Public Use
  Company Number: US-MERCK-0501USA02279

PATIENT
  Age: 41 Year
  Sex: Male
  Weight: 132 kg

DRUGS (4)
  1. VIOXX [Suspect]
     Indication: ARTHRITIS
     Route: 048
     Dates: start: 20020101, end: 20030101
  2. VIOXX [Suspect]
     Route: 048
     Dates: start: 20010101, end: 20030101
  3. VIOXX [Suspect]
     Route: 048
     Dates: start: 20001005
  4. VIOXX [Suspect]
     Route: 048
     Dates: start: 20030327

REACTIONS (28)
  - ABDOMINAL PAIN [None]
  - ATELECTASIS [None]
  - BACK PAIN [None]
  - BRONCHITIS ACUTE [None]
  - CARDIOMEGALY [None]
  - CHEST PAIN [None]
  - DIZZINESS [None]
  - DYSLIPIDAEMIA [None]
  - EAR PAIN [None]
  - HEPATOMEGALY [None]
  - HYPERCHOLESTEROLAEMIA [None]
  - HYPERTENSION [None]
  - HYPOXIA [None]
  - INSOMNIA [None]
  - LUNG INFILTRATION [None]
  - NASAL CONGESTION [None]
  - NASAL DRYNESS [None]
  - OEDEMA [None]
  - PAIN IN EXTREMITY [None]
  - PNEUMONIA [None]
  - PNEUMONIA ASPIRATION [None]
  - ROTATOR CUFF SYNDROME [None]
  - SLEEP APNOEA SYNDROME [None]
  - TACHYCARDIA [None]
  - THROMBOSIS [None]
  - VENTRICULAR HYPERTROPHY [None]
  - VOMITING [None]
  - WEIGHT INCREASED [None]
